FAERS Safety Report 21723099 (Version 1)
Quarter: 2022Q4

REPORT INFORMATION
  Report Type: Spontaneous
  Country: CN (occurrence: CN)
  Receive Date: 20221213
  Receipt Date: 20221213
  Transmission Date: 20230113
  Serious: Yes (Life-Threatening, Hospitalization)
  Sender: FDA-Public Use
  Company Number: CN-MYLANLABS-2022M1138118

PATIENT
  Age: 72 Year
  Sex: Female

DRUGS (8)
  1. ATORVASTATIN [Suspect]
     Active Substance: ATORVASTATIN
     Indication: Cerebral infarction
     Dosage: 40 MILLIGRAM, QD (NASOGASTRIC)
     Route: 065
     Dates: start: 202012
  2. ASPIRIN [Suspect]
     Active Substance: ASPIRIN
     Indication: Cerebral infarction
     Dosage: 300 MILLIGRAM, QD (NASOGASTRIC)
     Route: 065
     Dates: start: 202012
  3. ASPIRIN [Suspect]
     Active Substance: ASPIRIN
     Indication: Anticoagulant therapy
  4. BUTYLPHTHALIDE [Suspect]
     Active Substance: BUTYLPHTHALIDE
     Indication: Loss of consciousness
     Dosage: 200 MILLIGRAM, TID (NASOGASTRIC)
     Route: 065
     Dates: start: 202012
  5. BUTYLPHTHALIDE [Suspect]
     Active Substance: BUTYLPHTHALIDE
     Indication: Anticoagulant therapy
  6. ARGATROBAN [Suspect]
     Active Substance: ARGATROBAN
     Indication: Cerebral infarction
     Dosage: 60 MILLIGRAM
     Route: 042
     Dates: start: 202012
  7. ARGATROBAN [Suspect]
     Active Substance: ARGATROBAN
     Indication: Anticoagulant therapy
     Dosage: 10 MILLIGRAM, BID
     Route: 042
     Dates: start: 202012
  8. EDARAVONE [Suspect]
     Active Substance: EDARAVONE
     Indication: Cerebral infarction
     Dosage: 30 MILLIGRAM, BID
     Route: 065
     Dates: start: 202012

REACTIONS (1)
  - Drug ineffective [Unknown]

NARRATIVE: CASE EVENT DATE: 20201201
